FAERS Safety Report 5558858-9 (Version None)
Quarter: 2007Q4

REPORT INFORMATION
  Report Type: 
  Country: None (occurrence: None)
  Receive Date: 20071214
  Receipt Date: 20071208
  Transmission Date: 20080405
  Serious: Yes (Hospitalization, Other)
  Sender: FDA-Public Use
  Company Number: GR-PFIZER INC-2007103603

PATIENT

DRUGS (1)
  1. GENOTROPIN [Suspect]

REACTIONS (1)
  - HYPERSENSITIVITY [None]
